FAERS Safety Report 24567814 (Version 1)
Quarter: 2024Q4

REPORT INFORMATION
  Report Type: Spontaneous
  Country: US (occurrence: US)
  Receive Date: 20241031
  Receipt Date: 20241031
  Transmission Date: 20250114
  Serious: Yes (Other)
  Sender: ENDO
  Company Number: US-ENDO USA, INC.-2024-050263

PATIENT
  Age: 53 Year
  Sex: Male

DRUGS (1)
  1. XIAFLEX [Suspect]
     Active Substance: COLLAGENASE CLOSTRIDIUM HISTOLYTICUM
     Indication: Peyronie^s disease
     Dosage: UNK UNKNOWN, UNKNOWN (RIGHT SIDE OF THE CORPORAL BODY)
     Route: 026

REACTIONS (6)
  - Aneurysm [Recovered/Resolved]
  - Aneurysm repair [Recovered/Resolved]
  - Penile curvature repair [Recovered/Resolved]
  - Peyronie^s disease [Recovered/Resolved]
  - Discomfort [Recovered/Resolved]
  - Drug ineffective [Not Recovered/Not Resolved]
